FAERS Safety Report 5621848-1 (Version None)
Quarter: 2008Q1

REPORT INFORMATION
  Report Type: 
  Country: None (occurrence: None)
  Receive Date: 20080114
  Receipt Date: 20070619
  Transmission Date: 20080703
  Serious: Yes (Hospitalization)
  Sender: FDA-Public Use
  Company Number: A03200704143

PATIENT
  Age: 78 Year
  Sex: Female
  Weight: 55.3 kg

DRUGS (3)
  1. PLAVIX [Suspect]
     Indication: STENT PLACEMENT
     Dosage: 75 MG QD -ORAL
     Route: 048
     Dates: start: 20070101
  2. VERAPAMIL HYDROCHLORIDE [Concomitant]
  3. EZETIMIBE [Concomitant]

REACTIONS (6)
  - ASTHENIA [None]
  - FEELING ABNORMAL [None]
  - HEADACHE [None]
  - MUSCULOSKELETAL STIFFNESS [None]
  - MYALGIA [None]
  - STENT OCCLUSION [None]
